FAERS Safety Report 8514188-4 (Version None)
Quarter: 2012Q3

REPORT INFORMATION
  Report Type: 
  Country: None (occurrence: None)
  Receive Date: 20120717
  Receipt Date: 20120711
  Transmission Date: 20120928
  Serious: Yes (Other)
  Sender: FDA-Public Use
  Company Number: JP-PFIZER INC-2012167114

PATIENT

DRUGS (2)
  1. LYRICA [Suspect]
     Dosage: UNK
     Route: 048
  2. TEGRETOL [Suspect]
     Dosage: UNK

REACTIONS (1)
  - ROAD TRAFFIC ACCIDENT [None]
